FAERS Safety Report 4502984-X (Version None)
Quarter: 2004Q4

REPORT INFORMATION
  Report Type: 
  Country: None (occurrence: None)
  Receive Date: 20041112
  Receipt Date: 20041102
  Transmission Date: 20050328
  Serious: Yes (Death, Life-Threatening, Hospitalization)
  Sender: FDA-Public Use
  Company Number: HQWYE044205AUG04

PATIENT
  Age: 55 Year
  Sex: Female

DRUGS (16)
  1. MYLOTARG [Suspect]
     Indication: ACUTE MYELOID LEUKAEMIA
     Dosage: 14 MG 1X PER 1 DAY, INTRAVENOUS; 13 MG 1X PER 1 DAY, INTRAVENOUS
     Route: 042
     Dates: start: 20040629, end: 20040629
  2. MYLOTARG [Suspect]
     Indication: ACUTE MYELOID LEUKAEMIA
     Dosage: 14 MG 1X PER 1 DAY, INTRAVENOUS; 13 MG 1X PER 1 DAY, INTRAVENOUS
     Route: 042
     Dates: start: 20040713, end: 20040713
  3. PROVIGIL [Concomitant]
  4. GLUCOTROL XL [Concomitant]
  5. TRAMADOL HCL [Concomitant]
  6. DIFLUCAN [Concomitant]
  7. ACYCLOVIR [Concomitant]
  8. TEQUIN [Concomitant]
  9. PROTONIX [Concomitant]
  10. ZYPREXA [Concomitant]
  11. ESTRADIOL [Concomitant]
  12. DIGOXIN [Concomitant]
  13. SPIRONOLACTONE [Concomitant]
  14. COREG [Concomitant]
  15. DURAGESIC [Concomitant]
  16. ZESTRIL [Concomitant]

REACTIONS (4)
  - DISEASE PROGRESSION [None]
  - FEBRILE NEUTROPENIA [None]
  - STAPHYLOCOCCAL BACTERAEMIA [None]
  - WHITE BLOOD CELL COUNT DECREASED [None]
